FAERS Safety Report 7944769 (Version 9)
Quarter: 2012Q4

REPORT INFORMATION
  Report Type: 
  Country: US (occurrence: US)
  Receive Date: 20110513
  Receipt Date: 20121116
  Transmission Date: 20130627
  Serious: Yes (Hospitalization, Other)
  Sender: FDA-Public Use
  Company Number: US-009507513-1105USA02132

PATIENT

DRUGS (5)
  1. FOSAMAX [Suspect]
     Indication: OSTEOPOROSIS
     Dosage: 35 mg, UNK
     Route: 048
     Dates: start: 20031020, end: 20040617
  2. FOSAMAX [Suspect]
     Indication: OSTEOPENIA
     Dosage: 70 mg, UNK
     Route: 048
     Dates: start: 20040804, end: 20080213
  3. CYANOCOBALAMIN [Concomitant]
     Dates: start: 1970
  4. CALCIUM (UNSPECIFIED) [Concomitant]
     Dosage: UNK mg, UNK
     Dates: start: 1980
  5. NEXIUM [Concomitant]
     Dates: start: 2003, end: 2006

REACTIONS (33)
  - Femur fracture [Unknown]
  - Spinal disorder [Unknown]
  - Non-cardiac chest pain [Unknown]
  - Low turnover osteopathy [Unknown]
  - Impaired healing [Unknown]
  - Vitamin D deficiency [Unknown]
  - Tachycardia paroxysmal [Unknown]
  - Chest pain [Unknown]
  - Fatigue [Unknown]
  - Radiculopathy [Unknown]
  - Spondylolisthesis [Unknown]
  - Intervertebral disc protrusion [Unknown]
  - Spinal column stenosis [Unknown]
  - Intervertebral disc degeneration [Unknown]
  - Bursitis [Unknown]
  - Diverticulitis [Unknown]
  - Bursitis [Unknown]
  - Hypertriglyceridaemia [Unknown]
  - Osteoarthritis [Unknown]
  - Tendon disorder [Unknown]
  - Blood potassium increased [Unknown]
  - Urine analysis abnormal [Unknown]
  - White blood cells urine [Unknown]
  - Protein urine [Unknown]
  - Palpitations [Unknown]
  - Osteoarthritis [Unknown]
  - Bone disorder [Unknown]
  - Chondropathy [Unknown]
  - Exercise lack of [Unknown]
  - Gastrooesophageal reflux disease [Unknown]
  - Arthralgia [Unknown]
  - Back pain [Unknown]
  - Bone pain [Unknown]
